FAERS Safety Report 23985929 (Version 1)
Quarter: 2024Q2

REPORT INFORMATION
  Report Type: Spontaneous
  Country: US (occurrence: US)
  Receive Date: 20240618
  Receipt Date: 20240618
  Transmission Date: 20240716
  Serious: No
  Sender: FDA-Public Use
  Company Number: US-SA-SAC20240611000614

PATIENT
  Sex: Female
  Weight: 67 kg

DRUGS (6)
  1. DUPIXENT [Suspect]
     Active Substance: DUPILUMAB
     Indication: Asthma
     Dosage: 300 MG, QOW
     Route: 058
  2. KRILL OIL [Concomitant]
     Active Substance: DIETARY SUPPLEMENT\KRILL OIL
  3. VITAMINS NOS [Concomitant]
     Active Substance: VITAMINS
     Dosage: DAILY
  4. D1000 [Concomitant]
  5. ASPIRIN [Concomitant]
     Active Substance: ASPIRIN
  6. CALCIUM [Concomitant]
     Active Substance: CALCIUM

REACTIONS (1)
  - COVID-19 [Unknown]
